FAERS Safety Report 19508213 (Version 1)
Quarter: 2021Q3

REPORT INFORMATION
  Report Type: Spontaneous
  Country: DE (occurrence: DE)
  Receive Date: 20210708
  Receipt Date: 20210708
  Transmission Date: 20211014
  Serious: Yes (Hospitalization)
  Sender: FDA-Public Use
  Company Number: DE-ASTRAZENECA-2021A573854

PATIENT
  Age: 77 Year
  Sex: Female

DRUGS (13)
  1. ENOXAPARIN [Concomitant]
     Active Substance: ENOXAPARIN
     Dosage: 20 MG, 0?0?1?0, PRE?FILLED SYRINGES
     Route: 058
  2. PANTOPRAZOL [Concomitant]
     Active Substance: PANTOPRAZOLE SODIUM
     Dosage: 20 MG, 1?0?0?0, TABLET
     Route: 048
  3. ROFLUMILAST. [Suspect]
     Active Substance: ROFLUMILAST
     Dosage: 0.5 MG, 1?0?0?0, TABLETTEN
     Route: 048
  4. ATORVASTATIN [Concomitant]
     Active Substance: ATORVASTATIN
     Dosage: 20 MG, 0?0?0?1, TABLET
     Route: 048
  5. VILANTEROL TRIFENATATE/FLUTICASONE FUROATE/UMECLIDINIUM BROMIDE [Concomitant]
     Dosage: 92;55;22 MCG, 1?0?0?0, INHALATION POWDER
     Route: 055
  6. ZOPICLONE [Concomitant]
     Active Substance: ZOPICLONE
     Dosage: 7.5 MG, 0?0?0?1, TABLETS
     Route: 048
  7. ACETYLSALICYLSAURE [Concomitant]
     Active Substance: ASPIRIN
     Dosage: 100 MG, 1?0?0?0, TABLET
     Route: 048
  8. NEBIVOLOL. [Concomitant]
     Active Substance: NEBIVOLOL
     Dosage: 5 MG, 0.5?0?0?0.5, TABLET
     Route: 048
  9. CANDESARTAN. [Concomitant]
     Active Substance: CANDESARTAN
     Dosage: 8 MG, 1?0?0?0, TABLET
     Route: 048
  10. COLECALCIFEROL (VITAMIN D) [Concomitant]
     Active Substance: CHOLECALCIFEROL
     Dosage: 20000 IE, ACCORDING TO SCHEME, CAPSULES
     Route: 048
  11. PARACETAMOL [Concomitant]
     Active Substance: ACETAMINOPHEN
     Dosage: 1000 MG, NEED, SOLUTION FOR INJECTION/INFUSION
     Route: 042
  12. TAPENTADOL [Concomitant]
     Active Substance: TAPENTADOL
     Dosage: 100 MG, 1?0?0?1, RETARD?TABLET
     Route: 048
  13. MAGNESIUM [Concomitant]
     Active Substance: MAGNESIUM
     Dosage: 300 MG, 0?0?0?1, POWDERS
     Route: 048

REACTIONS (6)
  - Lymphadenopathy [Recovering/Resolving]
  - Cough [Recovering/Resolving]
  - Dyspnoea [Recovering/Resolving]
  - Pyrexia [Recovering/Resolving]
  - Vomiting [Recovering/Resolving]
  - Headache [Recovering/Resolving]
